FAERS Safety Report 15507633 (Version 2)
Quarter: 2018Q4

REPORT INFORMATION
  Report Type: Spontaneous
  Country: US (occurrence: US)
  Receive Date: 20181016
  Receipt Date: 20181115
  Transmission Date: 20190205
  Serious: No
  Sender: FDA-Public Use
  Company Number: US-SA-2018SA284490

PATIENT
  Age: 3 Year
  Sex: Female

DRUGS (1)
  1. LANTUS [Suspect]
     Active Substance: INSULIN GLARGINE
     Indication: TYPE 1 DIABETES MELLITUS
     Dosage: UNK UNK, BID 4U AM, 1UPM
     Dates: start: 20180717

REACTIONS (3)
  - Device operational issue [Unknown]
  - Product use issue [Unknown]
  - Blood glucose increased [Unknown]
